FAERS Safety Report 4673697-9 (Version None)
Quarter: 2005Q2

REPORT INFORMATION
  Report Type: 
  Country: None (occurrence: None)
  Receive Date: 20050523
  Receipt Date: 20050505
  Transmission Date: 20051028
  Serious: Yes (Hospitalization)
  Sender: FDA-Public Use
  Company Number: 2005-BP-07812RO

PATIENT
  Age: 72 Year
  Sex: Male

DRUGS (4)
  1. PREDNISONE [Suspect]
     Indication: POLYMYALGIA RHEUMATICA
     Dosage: SEE IMAGE
     Route: 048
     Dates: start: 20000901, end: 20001201
  2. PREDNISONE [Suspect]
     Indication: POLYMYALGIA RHEUMATICA
     Dosage: SEE IMAGE
     Route: 048
     Dates: start: 20010101, end: 20010401
  3. PREDNISONE [Suspect]
     Indication: POLYMYALGIA RHEUMATICA
     Dosage: SEE IMAGE
     Route: 048
     Dates: start: 20010401, end: 20010501
  4. PREDNISONE [Suspect]
     Indication: POLYMYALGIA RHEUMATICA
     Dosage: SEE IMAGE
     Route: 048
     Dates: start: 20010501, end: 20010901

REACTIONS (24)
  - AGGRESSION [None]
  - AGITATION [None]
  - CEREBRAL ATROPHY [None]
  - COGNITIVE DETERIORATION [None]
  - CONFUSIONAL STATE [None]
  - DEMENTIA [None]
  - DISTURBANCE IN ATTENTION [None]
  - DRUG EFFECT DECREASED [None]
  - EUPHORIC MOOD [None]
  - EXCITABILITY [None]
  - IMPULSIVE BEHAVIOUR [None]
  - INCORRECT DOSE ADMINISTERED [None]
  - INJURY [None]
  - INTENTIONAL MISUSE [None]
  - LEGAL PROBLEM [None]
  - MANIA [None]
  - MEMORY IMPAIRMENT [None]
  - NERVOUS SYSTEM DISORDER [None]
  - PARKINSONISM [None]
  - PERSEVERATION [None]
  - PSYCHOTIC DISORDER [None]
  - THINKING ABNORMAL [None]
  - TREMOR [None]
  - VASCULITIS CEREBRAL [None]
